FAERS Safety Report 7626076-6 (Version None)
Quarter: 2011Q3

REPORT INFORMATION
  Report Type: 
  Country: None (occurrence: None)
  Receive Date: 20110721
  Receipt Date: 20110708
  Transmission Date: 20111222
  Serious: Yes (Hospitalization, Other)
  Sender: FDA-Public Use
  Company Number: US-AMGEN-USASP2011034801

PATIENT
  Age: 62 Year
  Sex: Female

DRUGS (2)
  1. TREXALL [Concomitant]
     Dosage: 1 MG, QWK
  2. ENBREL [Suspect]
     Indication: RHEUMATOID ARTHRITIS
     Dosage: UNK
     Dates: start: 20060601, end: 20110601

REACTIONS (4)
  - THERMAL BURN [None]
  - BREAST CANCER [None]
  - INTRACRANIAL ANEURYSM [None]
  - RECALL PHENOMENON [None]
